FAERS Safety Report 7229255-5 (Version None)
Quarter: 2011Q1

REPORT INFORMATION
  Report Type: 
  Country: None (occurrence: None)
  Receive Date: 20110117
  Receipt Date: 20110106
  Transmission Date: 20110831
  Serious: Yes (Other)
  Sender: FDA-Public Use
  Company Number: US-RB-018734-11

PATIENT
  Sex: Female

DRUGS (1)
  1. MUCINEX [Suspect]
     Route: 048

REACTIONS (1)
  - HAEMOPTYSIS [None]
